FAERS Safety Report 23983682 (Version 1)
Quarter: 2024Q2

REPORT INFORMATION
  Report Type: Spontaneous
  Country: US (occurrence: None)
  Receive Date: 20240618
  Receipt Date: 20240618
  Transmission Date: 20240715
  Serious: No
  Sender: FDA-Public Use
  Company Number: 2024A139339

PATIENT
  Age: 68 Year
  Sex: Female

DRUGS (1)
  1. PRILOSEC OTC [Suspect]
     Active Substance: OMEPRAZOLE MAGNESIUM
     Dosage: UNK
     Route: 048
     Dates: start: 20240604

REACTIONS (2)
  - Gastrooesophageal reflux disease [Recovering/Resolving]
  - Throat irritation [Recovering/Resolving]

NARRATIVE: CASE EVENT DATE: 20240605
